FAERS Safety Report 7095918-8 (Version None)
Quarter: 2010Q4

REPORT INFORMATION
  Report Type: 
  Country: None (occurrence: None)
  Receive Date: 20101111
  Receipt Date: 20090326
  Transmission Date: 20110411
  Serious: No
  Sender: FDA-Public Use
  Company Number: US-KINGPHARMUSA00001-K200900349

PATIENT
  Sex: Female
  Weight: 54.422 kg

DRUGS (1)
  1. LEVOXYL [Suspect]
     Indication: HYPOTHYROIDISM
     Dosage: 100 MCG 6 DAYS A WEEK, 50 MCG 1 DAY A WEEK
     Route: 048
     Dates: start: 20020101

REACTIONS (2)
  - ADVERSE EVENT [None]
  - BONE DENSITY DECREASED [None]
